FAERS Safety Report 14073051 (Version 2)
Quarter: 2018Q2

REPORT INFORMATION
  Report Type: Spontaneous
  Country: DE (occurrence: DE)
  Receive Date: 20171011
  Receipt Date: 20180429
  Transmission Date: 20180711
  Serious: Yes (Death, Hospitalization, Other)
  Sender: FDA-Public Use
  Company Number: DE-TORRENT-00007198

PATIENT
  Age: 79 Year
  Sex: Female
  Weight: 50 kg

DRUGS (3)
  1. PRAXBIND [Suspect]
     Active Substance: IDARUCIZUMAB
     Indication: HAEMORRHAGE
     Dosage: UNKNOWN
     Route: 065
  2. PRADAXA [Suspect]
     Active Substance: DABIGATRAN ETEXILATE MESYLATE
     Indication: CEREBROVASCULAR ACCIDENT
     Dosage: 220 MG MILLIGRAM(S) EVERY DAY
     Route: 048
  3. CLOPIDOGREL [Suspect]
     Active Substance: CLOPIDOGREL BISULFATE
     Indication: CEREBROVASCULAR ACCIDENT

REACTIONS (16)
  - Abdominal discomfort [Unknown]
  - Coagulation factor increased [Unknown]
  - Gastrointestinal haemorrhage [Not Recovered/Not Resolved]
  - Activated partial thromboplastin time prolonged [Unknown]
  - Rectal perforation [Fatal]
  - Coagulopathy [Fatal]
  - Vomiting [Unknown]
  - Abdominal pain [Unknown]
  - Peritonitis [Fatal]
  - Coagulopathy [Unknown]
  - Anaemia [Unknown]
  - Coagulation time prolonged [Unknown]
  - Creatinine renal clearance decreased [Unknown]
  - Haemorrhage [Fatal]
  - Ileus paralytic [Fatal]
  - Prothrombin time prolonged [Unknown]
